FAERS Safety Report 9450598 (Version 1)
Quarter: 2013Q3

REPORT INFORMATION
  Report Type: Spontaneous
  Country: US (occurrence: US)
  Receive Date: 20130809
  Receipt Date: 20130809
  Transmission Date: 20140515
  Serious: Yes (Life-Threatening)
  Sender: FDA-Public Use
  Company Number: US-COVIDIEN/TYCO HEALTHCARE/MALLINCKRODT-T201303912

PATIENT
  Sex: 0

DRUGS (2)
  1. HYDROCODONE/ACETAMINOPHEN [Suspect]
     Indication: PAIN
     Dosage: 10/325MG, EVERY 4 HRS
     Dates: start: 20130729, end: 20130731
  2. PERCOCET /00446701/ [Suspect]
     Indication: PAIN

REACTIONS (5)
  - Unresponsive to stimuli [Recovered/Resolved]
  - Hypotonia [Recovered/Resolved]
  - Skin discolouration [Recovered/Resolved]
  - Hypopnoea [Recovered/Resolved]
  - Exposure during breast feeding [None]
